FAERS Safety Report 7563405-6 (Version None)
Quarter: 2011Q2

REPORT INFORMATION
  Report Type: 
  Country: None (occurrence: None)
  Receive Date: 20110622
  Receipt Date: 20110603
  Transmission Date: 20111010
  Serious: Yes (Hospitalization)
  Sender: FDA-Public Use
  Company Number: B0700060A

PATIENT
  Age: 63 Year
  Sex: Male
  Weight: 115.4 kg

DRUGS (8)
  1. AVANDIA [Suspect]
     Indication: DIABETES MELLITUS
     Dosage: 4MG PER DAY
     Route: 048
     Dates: start: 20010101, end: 20061212
  2. ALPRAZOLAM [Concomitant]
  3. TRICOR [Concomitant]
  4. TOPROL-XL [Concomitant]
  5. MIRAPEX [Concomitant]
  6. ZOCOR [Concomitant]
  7. GLUCOPHAGE [Concomitant]
  8. AMARYL [Concomitant]

REACTIONS (8)
  - DEPRESSION [None]
  - CARDIAC FAILURE CONGESTIVE [None]
  - ATRIAL FIBRILLATION [None]
  - ATRIAL THROMBOSIS [None]
  - BRONCHITIS [None]
  - PERICARDITIS [None]
  - PERICARDIAL CALCIFICATION [None]
  - THYROIDITIS [None]
